FAERS Safety Report 11405511 (Version 4)
Quarter: 2015Q3

REPORT INFORMATION
  Report Type: Spontaneous
  Country: GB (occurrence: GB)
  Receive Date: 20150821
  Receipt Date: 20150928
  Transmission Date: 20151125
  Serious: Yes (Other)
  Sender: FDA-Public Use
  Company Number: GB-JNJFOC-20150716766

PATIENT
  Sex: Female

DRUGS (1)
  1. SIMPONI [Suspect]
     Active Substance: GOLIMUMAB
     Indication: PRODUCT USED FOR UNKNOWN INDICATION
     Route: 058

REACTIONS (7)
  - Drug dose omission [Unknown]
  - Pain [Unknown]
  - Needle issue [Unknown]
  - Device malfunction [Unknown]
  - Procedural pain [Unknown]
  - Inappropriate schedule of drug administration [Unknown]
  - Shoulder operation [Unknown]

NARRATIVE: CASE EVENT DATE: 2015
